FAERS Safety Report 4344896-0 (Version None)
Quarter: 2004Q2

REPORT INFORMATION
  Report Type: 
  Country: None (occurrence: None)
  Receive Date: 20040421
  Receipt Date: 20040421
  Transmission Date: 20050107
  Serious: Yes (Other)
  Sender: FDA-Public Use
  Company Number: None

PATIENT
  Sex: Female
  Weight: 86.1834 kg

DRUGS (4)
  1. TWICE-A-DAY NASAL SPRAY (12 HOUR) [Suspect]
     Indication: NASAL DECONGESTION THERAPY
     Dosage: TWICE-A-DAY NASAL SPRAY
     Route: 045
     Dates: start: 20040201, end: 20040301
  2. CEPHALEXIN [Suspect]
  3. NASACORT AQ [Suspect]
  4. METHYLPREDNISOLONE [Suspect]

REACTIONS (1)
  - SINUSITIS [None]
